FAERS Safety Report 25447573 (Version 3)
Quarter: 2025Q3

REPORT INFORMATION
  Report Type: Report from Study
  Country: US (occurrence: US)
  Receive Date: 20250617
  Receipt Date: 20250813
  Transmission Date: 20251021
  Serious: Yes (Other)
  Sender: MALLINCKRODT
  Company Number: US-MALLINCKRODT-MNK202502673

PATIENT
  Sex: Female

DRUGS (5)
  1. CORTICOTROPIN [Suspect]
     Active Substance: CORTICOTROPIN
     Indication: Systemic lupus erythematosus
  2. CORTICOTROPIN [Suspect]
     Active Substance: CORTICOTROPIN
  3. CORTICOTROPIN [Suspect]
     Active Substance: CORTICOTROPIN
     Route: 058
  4. BENLYSTA [Concomitant]
     Active Substance: BELIMUMAB
     Route: 058
  5. METHOTREXATE [Concomitant]
     Active Substance: METHOTREXATE

REACTIONS (5)
  - Pericardial effusion [Recovered/Resolved]
  - Condition aggravated [Recovered/Resolved]
  - Injection site bruising [Unknown]
  - Fatigue [Unknown]
  - Therapy non-responder [Unknown]

NARRATIVE: CASE EVENT DATE: 20250101
